FAERS Safety Report 12627175 (Version 2)
Quarter: 2016Q3

REPORT INFORMATION
  Report Type: Report from Study
  Country: US (occurrence: US)
  Receive Date: 20160805
  Receipt Date: 20160818
  Transmission Date: 20161109
  Serious: Yes (Other)
  Sender: FDA-Public Use
  Company Number: US-ABBVIE-16K-163-1684949-00

PATIENT
  Sex: Female

DRUGS (2)
  1. HUMIRA [Suspect]
     Active Substance: ADALIMUMAB
     Route: 058
     Dates: start: 20160713
  2. HUMIRA [Suspect]
     Active Substance: ADALIMUMAB
     Indication: CROHN^S DISEASE
     Route: 058
     Dates: start: 201505, end: 201605

REACTIONS (20)
  - Abdominal pain [Recovering/Resolving]
  - Depression [Unknown]
  - Weight decreased [Recovering/Resolving]
  - Nausea [Recovering/Resolving]
  - Dizziness [Unknown]
  - Haemorrhoids [Unknown]
  - Depressed mood [Recovering/Resolving]
  - Constipation [Recovering/Resolving]
  - Rectal haemorrhage [Unknown]
  - Fatigue [Unknown]
  - Decreased appetite [Unknown]
  - Activities of daily living impaired [Recovering/Resolving]
  - Diarrhoea [Recovering/Resolving]
  - Vomiting [Recovering/Resolving]
  - Pyrexia [Recovering/Resolving]
  - Anxiety [Recovering/Resolving]
  - Fear [Recovering/Resolving]
  - Frequent bowel movements [Recovering/Resolving]
  - Bronchial disorder [Unknown]
  - Insomnia [Unknown]

NARRATIVE: CASE EVENT DATE: 2016
